FAERS Safety Report 4991528-4 (Version None)
Quarter: 2006Q2

REPORT INFORMATION
  Report Type: 
  Country: None (occurrence: None)
  Receive Date: 20060502
  Receipt Date: 20060421
  Transmission Date: 20061013
  Serious: Yes (Hospitalization)
  Sender: FDA-Public Use
  Company Number: GXKR2006US02334

PATIENT
  Age: 66 Year
  Sex: Male

DRUGS (2)
  1. WARFARIN SODIUM [Suspect]
     Dosage: 2.5 MG, QD
  2. METHYL SALICYLATE (METHYL SALICYLATE) [Concomitant]

REACTIONS (4)
  - FOOD INTERACTION [None]
  - GASTRIC CANCER [None]
  - GASTRIC HAEMORRHAGE [None]
  - INTERNATIONAL NORMALISED RATIO INCREASED [None]
